FAERS Safety Report 13290768 (Version 3)
Quarter: 2017Q2

REPORT INFORMATION
  Report Type: Report from Study
  Country: None (occurrence: IT)
  Receive Date: 20170302
  Receipt Date: 20170629
  Transmission Date: 20170830
  Serious: Yes (Other)
  Sender: FDA-Public Use
  Company Number: IT-BIOVITRUM-2017IT0212

PATIENT
  Age: 18 Year
  Sex: Male
  Weight: 66.7 kg

DRUGS (3)
  1. ORFADIN [Suspect]
     Active Substance: NITISINONE
     Dates: start: 199710
  2. ORFADIN [Suspect]
     Active Substance: NITISINONE
     Dates: start: 19980306
  3. ORFADIN [Suspect]
     Active Substance: NITISINONE
     Indication: TYROSINAEMIA
     Dates: start: 20150906

REACTIONS (8)
  - Confusional state [Recovered/Resolved]
  - Social avoidant behaviour [Not Recovered/Not Resolved]
  - Amino acid level increased [Unknown]
  - Cognitive disorder [Unknown]
  - Psychotic disorder [Recovered/Resolved]
  - Hallucination, auditory [Recovered/Resolved]
  - Suicide attempt [Recovered/Resolved]
  - Mutism [Recovered/Resolved]

NARRATIVE: CASE EVENT DATE: 20150910
